FAERS Safety Report 15752949 (Version 3)
Quarter: 2019Q1

REPORT INFORMATION
  Report Type: Report from Study
  Country: US (occurrence: US)
  Receive Date: 20181221
  Receipt Date: 20190104
  Transmission Date: 20190417
  Serious: Yes (Other)
  Sender: FDA-Public Use
  Company Number: US-JAZZ-2018-US-017908

PATIENT
  Sex: Female

DRUGS (27)
  1. FLECTOR [DICLOFENAC SODIUM] [Concomitant]
     Active Substance: DICLOFENAC SODIUM
  2. LISINOPRIL. [Concomitant]
     Active Substance: LISINOPRIL
  3. OMEPRAZOLE. [Concomitant]
     Active Substance: OMEPRAZOLE
  4. SORILUX [Concomitant]
     Active Substance: CALCIPOTRIENE
  5. SYMBICORT [Concomitant]
     Active Substance: BUDESONIDE\FORMOTEROL FUMARATE DIHYDRATE
  6. FUROSEMIDE. [Concomitant]
     Active Substance: FUROSEMIDE
  7. HUMIRA [Concomitant]
     Active Substance: ADALIMUMAB
  8. NIFEDIPINE. [Concomitant]
     Active Substance: NIFEDIPINE
  9. NUVIGIL [Concomitant]
     Active Substance: ARMODAFINIL
  10. XYREM [Suspect]
     Active Substance: SODIUM OXYBATE
     Indication: NARCOLEPSY
     Dosage: 2.25 G, BID
     Route: 048
     Dates: start: 201811, end: 201811
  11. CLOBETASOL [Concomitant]
     Active Substance: CLOBETASOL
  12. DESLORATADINE. [Concomitant]
     Active Substance: DESLORATADINE
  13. NORCO [Concomitant]
     Active Substance: ACETAMINOPHEN\HYDROCODONE BITARTRATE
  14. SPIRIVA [Concomitant]
     Active Substance: TIOTROPIUM BROMIDE MONOHYDRATE
  15. SYNJARDY [Concomitant]
     Active Substance: EMPAGLIFLOZIN\METFORMIN HYDROCHLORIDE
  16. XYREM [Suspect]
     Active Substance: SODIUM OXYBATE
     Dosage: 3 G, BID
     Route: 048
     Dates: start: 201811
  17. CYTOMEL [Concomitant]
     Active Substance: LIOTHYRONINE SODIUM
  18. LOPRESSOR [Concomitant]
     Active Substance: METOPROLOL TARTRATE
  19. OXYBUTYNIN CHLORIDE. [Concomitant]
     Active Substance: OXYBUTYNIN CHLORIDE
  20. PROAIR HFA [Concomitant]
     Active Substance: ALBUTEROL SULFATE
  21. MIRAPEX [Concomitant]
     Active Substance: PRAMIPEXOLE DIHYDROCHLORIDE
  22. PROZAC [Concomitant]
     Active Substance: FLUOXETINE HYDROCHLORIDE
  23. SYNTHROID [Concomitant]
     Active Substance: LEVOTHYROXINE SODIUM
  24. GABAPENTIN. [Concomitant]
     Active Substance: GABAPENTIN
  25. MOVANTIK [Concomitant]
     Active Substance: NALOXEGOL OXALATE
  26. POTASSIUM CL [Concomitant]
     Active Substance: POTASSIUM CHLORIDE
  27. TRIAMCINOLONE [Concomitant]
     Active Substance: TRIAMCINOLONE

REACTIONS (5)
  - Dyspnoea [Recovered/Resolved]
  - Oedema [Unknown]
  - Blood pressure abnormal [Unknown]
  - Cough [Unknown]
  - Ill-defined disorder [Recovered/Resolved]

NARRATIVE: CASE EVENT DATE: 2018
